FAERS Safety Report 6037293-3 (Version None)
Quarter: 2009Q1

REPORT INFORMATION
  Report Type: 
  Country: None (occurrence: None)
  Receive Date: 20090114
  Receipt Date: 20090112
  Transmission Date: 20090719
  Serious: Yes (Hospitalization)
  Sender: FDA-Public Use
  Company Number: D0060132A

PATIENT
  Age: 86 Year
  Sex: Female

DRUGS (1)
  1. SALBUHEXAL [Suspect]
     Indication: CHRONIC OBSTRUCTIVE PULMONARY DISEASE
     Dosage: 1.5MG UNKNOWN
     Route: 055
     Dates: start: 20080830

REACTIONS (1)
  - NAUSEA [None]
